FAERS Safety Report 6431788-6 (Version None)
Quarter: 2009Q4

REPORT INFORMATION
  Report Type: 
  Country: None (occurrence: None)
  Receive Date: 20091104
  Receipt Date: 20091026
  Transmission Date: 20100525
  Serious: Yes (Other)
  Sender: FDA-Public Use
  Company Number: 2009SP032884

PATIENT
  Age: 33 Year
  Sex: Male

DRUGS (7)
  1. MIRTAZAPINE [Suspect]
     Indication: DEPRESSION
     Dosage: 15 MG; QD; PO, 30 MG; QD; PO
     Route: 048
     Dates: start: 20090909, end: 20090929
  2. MIRTAZAPINE [Suspect]
     Indication: DEPRESSION
     Dosage: 15 MG; QD; PO, 30 MG; QD; PO
     Route: 048
     Dates: start: 20090930, end: 20091017
  3. CLOTIAZEPAM [Concomitant]
  4. VALPROATE SODIUM [Concomitant]
  5. REBAMIPIDE [Concomitant]
  6. FLUNITRAZEPAM [Concomitant]
  7. SERTRALINE HYDROCHLORIDE [Concomitant]

REACTIONS (2)
  - FALL [None]
  - HYPOAESTHESIA [None]
